FAERS Safety Report 8826517 (Version 2)
Quarter: 2012Q4

REPORT INFORMATION
  Report Type: 
  Country: CA (occurrence: CA)
  Receive Date: 20121008
  Receipt Date: 20121114
  Transmission Date: 20130627
  Serious: Yes (Death)
  Sender: FDA-Public Use
  Company Number: PHHY2012CA088077

PATIENT
  Age: 80 Year
  Sex: Male

DRUGS (10)
  1. ACLASTA [Suspect]
     Indication: OSTEOPOROSIS
     Dosage: 5 mg, UNK
     Route: 042
     Dates: start: 20111222
  2. ADALAT XL [Concomitant]
     Dosage: 60 mg, BID
  3. SYNTHROID [Concomitant]
     Dosage: 0.05 mg, BID
  4. LIPITOR [Concomitant]
     Dosage: 20 mg, BID
  5. CAL D [Concomitant]
     Dosage: 500//400 BID
  6. PRADAX [Concomitant]
     Dosage: 110 mg, BID
  7. LOPERIN [Concomitant]
     Dosage: 100 mg, BID
  8. ATIVAN [Concomitant]
     Dosage: 2 mg, UNK
  9. BISACODYL [Concomitant]
  10. SENOKOT [Concomitant]

REACTIONS (1)
  - Sudden death [Fatal]
